FAERS Safety Report 6180713-4 (Version None)
Quarter: 2009Q2

REPORT INFORMATION
  Report Type: 
  Country: None (occurrence: None)
  Receive Date: 20090504
  Receipt Date: 20090402
  Transmission Date: 20091009
  Serious: Yes (Hospitalization)
  Sender: FDA-Public Use
  Company Number: KV200800184

PATIENT
  Age: 64 Year
  Sex: Female
  Weight: 58.2 kg

DRUGS (24)
  1. MORPHINE SULFATE [Suspect]
     Indication: PAIN
     Dates: start: 20070101
  2. MORPHINE SULFATE [Suspect]
     Indication: PAIN
     Dates: start: 20070101
  3. MORPHINE SULFATE [Suspect]
     Indication: PAIN
     Dates: start: 20070101
  4. ACYCLOVIR /00587301/ (ACICLOVIR) [Concomitant]
  5. ASPIRIN [Concomitant]
  6. BUMETANIDE [Concomitant]
  7. CALCIUM CARBONATE (CALCIUM CARBONATE) [Concomitant]
  8. EZETIMIBE [Concomitant]
  9. LANSOPRAZOLE [Concomitant]
  10. LEVOTHYROXINE SODIUM [Concomitant]
  11. OXYCODONE HCL [Concomitant]
  12. PARAXETINE (PAROXETINE) [Concomitant]
  13. SENOKOT /00142201/ (SENNA ALEXANDRINA) [Concomitant]
  14. SPIRONOLACTONE [Concomitant]
  15. ZOLPIDEM [Concomitant]
  16. ACETAMINOPHEN W/ CODEINE [Concomitant]
  17. DOCUSATE SODIUM (DOCUSATE SODIUM) [Concomitant]
  18. ENOXAPARIN SODIUM [Concomitant]
  19. FERROUS GLUCONATE (FERROUS GLUCONATE) [Concomitant]
  20. METOPROLOL TARTRATE [Concomitant]
  21. PREGABALIN (PREGABALIN) [Concomitant]
  22. SIMVASTATIN [Concomitant]
  23. ALPRAZOLAM [Concomitant]
  24. BONIVA [Concomitant]

REACTIONS (10)
  - COGNITIVE DISORDER [None]
  - DISORIENTATION [None]
  - DRUG INEFFECTIVE [None]
  - FALL [None]
  - HIP FRACTURE [None]
  - MEMORY IMPAIRMENT [None]
  - PAIN IN EXTREMITY [None]
  - PRODUCT QUALITY ISSUE [None]
  - RASH [None]
  - SOMNOLENCE [None]
